FAERS Safety Report 6424125-4 (Version None)
Quarter: 2009Q4

REPORT INFORMATION
  Report Type: 
  Country: None (occurrence: None)
  Receive Date: 20091102
  Receipt Date: 20091028
  Transmission Date: 20100525
  Serious: Yes (Other)
  Sender: FDA-Public Use
  Company Number: PT-AMGEN-UK356666

PATIENT
  Age: 24 Year
  Sex: Female

DRUGS (13)
  1. ARANESP [Suspect]
     Indication: RENAL FAILURE CHRONIC
     Route: 058
     Dates: start: 20070701
  2. AMLODIPINE [Concomitant]
  3. ENALAPRIL [Concomitant]
  4. LOSARTAN [Concomitant]
  5. CALCIUM [Concomitant]
  6. FOLIC ACID [Concomitant]
  7. VITAMIN B COMPLEX CAP [Concomitant]
  8. CINACALCET [Concomitant]
  9. VITAMIN D [Concomitant]
  10. FUROSEMIDE [Concomitant]
  11. OMEPRAZOLE [Concomitant]
  12. UNSPECIFIED CONTRACEPTIVE [Concomitant]
     Route: 048
  13. EZETIMIBE [Concomitant]

REACTIONS (3)
  - APLASIA PURE RED CELL [None]
  - COOMBS TEST POSITIVE [None]
  - HAEMOLYTIC ANAEMIA [None]
